FAERS Safety Report 7385377-X (Version None)
Quarter: 2011Q1

REPORT INFORMATION
  Report Type: 
  Country: None (occurrence: None)
  Receive Date: 20110330
  Receipt Date: 20101202
  Transmission Date: 20110831
  Serious: No
  Sender: FDA-Public Use
  Company Number: US-MYLANLABS-2010S1022186

PATIENT
  Age: 59 Year
  Sex: Female

DRUGS (9)
  1. CLONAZEPAM [Concomitant]
     Indication: ANXIETY
  2. HORMONE THERAPY [Concomitant]
     Dosage: COMPOUNDED
  3. ASPIRIN [Concomitant]
  4. PROBIOTICA [Concomitant]
  5. IRON [Concomitant]
  6. MULTIVITAMIN [Concomitant]
  7. CALCIUM [Concomitant]
  8. EMSAM [Suspect]
     Indication: DEPRESSION
     Dosage: CHANGED Q24H
     Route: 062
  9. TRAZODONE HCL [Concomitant]
     Indication: INSOMNIA

REACTIONS (3)
  - DEPRESSED MOOD [None]
  - FEELING JITTERY [None]
  - DRUG EFFECT DECREASED [None]
